FAERS Safety Report 23795325 (Version 1)
Quarter: 2024Q2

REPORT INFORMATION
  Report Type: Spontaneous
  Country: US (occurrence: US)
  Receive Date: 20240429
  Receipt Date: 20240429
  Transmission Date: 20240716
  Serious: No
  Sender: FDA-Public Use
  Company Number: US-TPU-TPU-2024-00139

PATIENT
  Age: 73 Year
  Sex: Female
  Weight: 58.97 kg

DRUGS (1)
  1. LIDODERM [Suspect]
     Active Substance: LIDOCAINE
     Indication: Complex regional pain syndrome

REACTIONS (11)
  - Urinary tract infection [Unknown]
  - Fall [Unknown]
  - Fungal infection [Unknown]
  - Psoriatic arthropathy [Unknown]
  - Contusion [Unknown]
  - Product prescribing error [Unknown]
  - Drug ineffective for unapproved indication [Unknown]
  - Back pain [Unknown]
  - Pain [Unknown]
  - Insomnia [Unknown]
  - Gait disturbance [Unknown]

NARRATIVE: CASE EVENT DATE: 20230101
